FAERS Safety Report 7218958-4 (Version None)
Quarter: 2011Q1

REPORT INFORMATION
  Report Type: 
  Country: None (occurrence: None)
  Receive Date: 20110111
  Receipt Date: 20101230
  Transmission Date: 20110831
  Serious: Yes (Hospitalization)
  Sender: FDA-Public Use
  Company Number: US-BIOGENIDEC-2010BI043904

PATIENT
  Age: 28 Year
  Sex: Male

DRUGS (2)
  1. TYSABRI [Suspect]
     Indication: CROHN'S DISEASE
     Route: 042
     Dates: start: 20101001
  2. IRON DEXTRAN [Concomitant]

REACTIONS (4)
  - PERIRECTAL ABSCESS [None]
  - CROHN'S DISEASE [None]
  - ANAL FISTULA [None]
  - MICROCYTIC ANAEMIA [None]
